FAERS Safety Report 6981295-7 (Version None)
Quarter: 2010Q3

REPORT INFORMATION
  Report Type: 
  Country: None (occurrence: None)
  Receive Date: 20100914
  Receipt Date: 20100907
  Transmission Date: 20110219
  Serious: Yes (Other)
  Sender: FDA-Public Use
  Company Number: US-JNJFOC-20100802638

PATIENT
  Sex: Female
  Weight: 62.6 kg

DRUGS (1)
  1. LEVAQUIN [Suspect]
     Indication: SINUSITIS
     Route: 048

REACTIONS (5)
  - DISORIENTATION [None]
  - MALAISE [None]
  - MENTAL IMPAIRMENT [None]
  - PARANOIA [None]
  - TREMOR [None]
